FAERS Safety Report 24292257 (Version 1)
Quarter: 2024Q3

REPORT INFORMATION
  Report Type: Spontaneous
  Country: US (occurrence: None)
  Receive Date: 20240906
  Receipt Date: 20240906
  Transmission Date: 20241016
  Serious: No
  Sender: DOMPE FARMACEUTICI
  Company Number: US-FARMAPROD-202307-2268

PATIENT
  Sex: Male
  Weight: 49.9 kg

DRUGS (7)
  1. OXERVATE [Suspect]
     Active Substance: CENEGERMIN-BKBJ
     Indication: Neurotrophic keratopathy
     Route: 047
     Dates: start: 20230601
  2. OXERVATE [Suspect]
     Active Substance: CENEGERMIN-BKBJ
     Indication: Hypoaesthesia eye
  3. OXERVATE [Suspect]
     Active Substance: CENEGERMIN-BKBJ
     Indication: Ulcerative keratitis
  4. ODEFSEY [Concomitant]
     Active Substance: EMTRICITABINE\RILPIVIRINE HYDROCHLORIDE\TENOFOVIR ALAFENAMIDE FUMARATE
     Dosage: 200-25-25
  5. SULFACETAMIDE SODIUM [Concomitant]
     Active Substance: SULFACETAMIDE SODIUM
  6. CYCLOPENTOLATE HYDROCHLORIDE [Concomitant]
     Active Substance: CYCLOPENTOLATE HYDROCHLORIDE
  7. OFLOXACIN [Concomitant]
     Active Substance: OFLOXACIN

REACTIONS (2)
  - Ocular hyperaemia [Unknown]
  - Product dose omission issue [Unknown]
